FAERS Safety Report 18099403 (Version 1)
Quarter: 2020Q3

REPORT INFORMATION
  Report Type: Spontaneous
  Country: US (occurrence: US)
  Receive Date: 20200731
  Receipt Date: 20200731
  Transmission Date: 20201103
  Serious: Yes (Other)
  Sender: FDA-Public Use
  Company Number: US-INSUD PHARMA-2007US00180

PATIENT

DRUGS (9)
  1. ESTRASORB [Suspect]
     Active Substance: ESTRADIOL HEMIHYDRATE
     Dosage: INCREASED TO 4 MILLIGRAM DAILY ONE MONTH PRIOR TO SYMPTOM ONSET
     Route: 048
  2. ESTRASORB [Suspect]
     Active Substance: ESTRADIOL HEMIHYDRATE
     Indication: GENDER DYSPHORIA
     Dosage: 1?4 MG DAILY FOR 23 YEARS
     Route: 048
  3. ESTRASORB [Suspect]
     Active Substance: ESTRADIOL HEMIHYDRATE
     Dosage: 0.025 MG PATCH TWICE WEEKLY
     Route: 062
  4. IBUPROFEN. [Concomitant]
     Active Substance: IBUPROFEN
     Indication: PRODUCT USED FOR UNKNOWN INDICATION
     Dosage: OCCASIONAL
  5. PROGESTERONE. [Suspect]
     Active Substance: PROGESTERONE
     Indication: GENDER DYSPHORIA
     Dosage: 100 MILLIGRAM PER DAY OF MICRONIZED PROGESTERONE ONE MONTH BEFORE SYMPTOM ONSET
     Route: 048
  6. ESTRASORB [Suspect]
     Active Substance: ESTRADIOL HEMIHYDRATE
     Dosage: HELD FOR ONE MONTH
  7. LISINOPRIL. [Concomitant]
     Active Substance: LISINOPRIL
     Indication: PRODUCT USED FOR UNKNOWN INDICATION
  8. MEDROXYPROGESTERONE [Concomitant]
     Active Substance: MEDROXYPROGESTERONE
     Indication: PRODUCT USED FOR UNKNOWN INDICATION
  9. SPIRONOLACTONE. [Concomitant]
     Active Substance: SPIRONOLACTONE
     Indication: PRODUCT USED FOR UNKNOWN INDICATION

REACTIONS (10)
  - Porphyria non-acute [Recovered/Resolved]
  - Pruritus [Recovered/Resolved]
  - Milia [Recovered/Resolved]
  - Drug level above therapeutic [Recovered/Resolved]
  - Photosensitivity reaction [Recovered/Resolved]
  - Pain [Recovered/Resolved]
  - Erythema [Recovered/Resolved]
  - Unmasking of previously unidentified disease [Recovered/Resolved]
  - Blister [Recovered/Resolved]
  - Transaminases increased [Recovered/Resolved]
